FAERS Safety Report 7796975-3 (Version None)
Quarter: 2011Q4

REPORT INFORMATION
  Report Type: 
  Country: None (occurrence: None)
  Receive Date: 20111005
  Receipt Date: 20111005
  Transmission Date: 20120403
  Serious: Yes (Other)
  Sender: FDA-Public Use
  Company Number: None

PATIENT
  Age: 60 Year
  Sex: Male
  Weight: 103.87 kg

DRUGS (1)
  1. OXYCONTIN [Suspect]
     Indication: NEOPLASM MALIGNANT
     Dosage: 1 TABLET
     Route: 048

REACTIONS (2)
  - PRODUCT FORMULATION ISSUE [None]
  - NAUSEA [None]
